FAERS Safety Report 23040541 (Version 1)
Quarter: 2023Q4

REPORT INFORMATION
  Report Type: Spontaneous
  Country: PT (occurrence: PT)
  Receive Date: 20231006
  Receipt Date: 20231006
  Transmission Date: 20240109
  Serious: Yes (Other)
  Sender: FDA-Public Use
  Company Number: PT-BAYER-2023A130763

PATIENT
  Age: 71 Year
  Sex: Male

DRUGS (6)
  1. CIPROFLOXACIN [Suspect]
     Active Substance: CIPROFLOXACIN
     Indication: Mycobacterial infection
     Dosage: 1000 MILLIGRAM, QD,500 MG, BID
     Route: 048
  2. PIPERACILLIN [Concomitant]
     Active Substance: PIPERACILLIN
     Indication: Large intestine infection
     Dosage: 13.5 MILLIGRAM, QD,4.5 MG, TID
     Route: 065
  3. CLINDAMYCIN [Concomitant]
     Active Substance: CLINDAMYCIN
     Indication: Large intestine infection
     Dosage: 3600 MILLIGRAM, QD,1200 MG, TID
     Route: 065
  4. TAZOBACTAM [Concomitant]
     Active Substance: TAZOBACTAM
     Indication: Large intestine infection
     Dosage: 13.5 MILLIGRAM, QD,4.5 MG, TID
     Route: 065
  5. ETHAMBUTOL [Concomitant]
     Active Substance: ETHAMBUTOL HYDROCHLORIDE
     Dosage: 750 MILLIGRAM
     Route: 065
  6. RIFABUTIN [Concomitant]
     Active Substance: RIFABUTIN
     Dosage: 300 MILLIGRAM
     Route: 065

REACTIONS (2)
  - Acute kidney injury [Unknown]
  - Drug ineffective for unapproved indication [Unknown]
